FAERS Safety Report 9947648 (Version 1)
Quarter: 2014Q1

REPORT INFORMATION
  Report Type: Report from Study
  Country: US (occurrence: US)
  Receive Date: 20140303
  Receipt Date: 20140303
  Transmission Date: 20141002
  Serious: No
  Sender: FDA-Public Use
  Company Number: US-ABBVIE-13P-163-1064975-00

PATIENT
  Age: 37 Year
  Sex: Female
  Weight: 113.5 kg

DRUGS (4)
  1. HUMIRA [Suspect]
     Indication: SERONEGATIVE ARTHRITIS
     Dates: start: 201206, end: 201210
  2. HUMIRA [Suspect]
     Dates: start: 201210
  3. HYDROCHLOROTHIAZIDE AND TRIAMTERENE [Concomitant]
     Indication: BLOOD PRESSURE
  4. TRINESSA [Concomitant]
     Indication: CONTRACEPTION

REACTIONS (2)
  - Uveitis [Recovered/Resolved]
  - Neck pain [Recovered/Resolved]
